FAERS Safety Report 9699659 (Version 2)
Quarter: 2013Q4

REPORT INFORMATION
  Report Type: Spontaneous
  Country: US (occurrence: US)
  Receive Date: 20131120
  Receipt Date: 20131120
  Transmission Date: 20140711
  Serious: No
  Sender: FDA-Public Use
  Company Number: US-TEVA-362479USA

PATIENT
  Sex: Female
  Weight: 81.72 kg

DRUGS (2)
  1. PARAGARD 380A [Suspect]
     Indication: CONTRACEPTION
     Route: 015
     Dates: start: 20100720
  2. PRENATAL VITAMINS [Concomitant]
     Dates: start: 20121002

REACTIONS (2)
  - Pregnancy with contraceptive device [Unknown]
  - Drug ineffective [Unknown]
